FAERS Safety Report 14454309 (Version 1)
Quarter: 2018Q1

REPORT INFORMATION
  Report Type: Spontaneous
  Country: US (occurrence: US)
  Receive Date: 20180128
  Receipt Date: 20180128
  Transmission Date: 20180509
  Serious: Yes (Other)
  Sender: FDA-Public Use
  Company Number: None

PATIENT
  Age: 40 Year
  Sex: Female
  Weight: 72 kg

DRUGS (2)
  1. HYDROCODONE 5/325 [Suspect]
     Active Substance: HYDROCODONE
     Indication: ENDOMETRIOSIS
     Dosage: ?          QUANTITY:75 TABLET(S);?
     Route: 048
     Dates: start: 20171226, end: 20180125
  2. VITAMIN D [Concomitant]
     Active Substance: CHOLECALCIFEROL

REACTIONS (2)
  - Pain [None]
  - Headache [None]

NARRATIVE: CASE EVENT DATE: 20171226
